FAERS Safety Report 11277871 (Version 3)
Quarter: 2017Q4

REPORT INFORMATION
  Report Type: Report from Study
  Country: US (occurrence: US)
  Receive Date: 20150716
  Receipt Date: 20171006
  Transmission Date: 20180320
  Serious: Yes (Disabling)
  Sender: FDA-Public Use
  Company Number: US-ALLERGAN-1513245US

PATIENT
  Age: 61 Year
  Sex: Male
  Weight: 81.63 kg

DRUGS (25)
  1. BOTULINUM TOXIN TYPE A - GENERAL (9060X) [Suspect]
     Active Substance: BOTULINUM TOXIN TYPE A
     Dosage: 35 UNITS, SINGLE
     Route: 030
     Dates: start: 20150410, end: 20150410
  2. BOTULINUM TOXIN TYPE A - GENERAL (9060X) [Suspect]
     Active Substance: BOTULINUM TOXIN TYPE A
     Dosage: 15 UNITS, SINGLE
     Route: 030
     Dates: start: 20150410, end: 20150410
  3. FLUTICASONE. [Concomitant]
     Active Substance: FLUTICASONE
  4. LOSARTAN. [Concomitant]
     Active Substance: LOSARTAN
  5. BOTULINUM TOXIN TYPE A - GENERAL (9060X) [Suspect]
     Active Substance: BOTULINUM TOXIN TYPE A
     Dosage: 250 UNITS, SINGLE
     Route: 030
     Dates: start: 20141010, end: 20141010
  6. BOTULINUM TOXIN TYPE A - GENERAL (9060X) [Suspect]
     Active Substance: BOTULINUM TOXIN TYPE A
     Dosage: 30 UNITS, SINGLE
     Route: 030
     Dates: start: 20150410, end: 20150410
  7. BOTULINUM TOXIN TYPE A - GENERAL (9060X) [Suspect]
     Active Substance: BOTULINUM TOXIN TYPE A
     Dosage: 15 UNITS, SINGLE
     Route: 030
     Dates: start: 20150410, end: 20150410
  8. ALLOPURINOL. [Concomitant]
     Active Substance: ALLOPURINOL
  9. BOTULINUM TOXIN TYPE A - GENERAL (9060X) [Suspect]
     Active Substance: BOTULINUM TOXIN TYPE A
     Dosage: 35 UNITS, SINGLE
     Route: 030
     Dates: start: 20150410, end: 20150410
  10. BOTULINUM TOXIN TYPE A - GENERAL (9060X) [Suspect]
     Active Substance: BOTULINUM TOXIN TYPE A
     Dosage: 20 UNITS, SINGLE
     Route: 030
     Dates: start: 20150410, end: 20150410
  11. BOTULINUM TOXIN TYPE A - GENERAL (9060X) [Suspect]
     Active Substance: BOTULINUM TOXIN TYPE A
     Dosage: 25 UNITS, SINGLE
     Route: 030
     Dates: start: 20150410, end: 20150410
  12. BOTULINUM TOXIN TYPE A - GENERAL (9060X) [Suspect]
     Active Substance: BOTULINUM TOXIN TYPE A
     Indication: MUSCLE SPASTICITY
     Dosage: 200 UNITS, SINGLE
     Route: 030
     Dates: start: 20150710, end: 20150710
  13. BOTULINUM TOXIN TYPE A - GENERAL (9060X) [Suspect]
     Active Substance: BOTULINUM TOXIN TYPE A
     Dosage: UNK UNK, SINGLE
     Route: 030
     Dates: start: 20150410, end: 20150410
  14. PRAVASTATIN. [Concomitant]
     Active Substance: PRAVASTATIN
  15. TIZANIDINE. [Concomitant]
     Active Substance: TIZANIDINE
  16. BOTULINUM TOXIN TYPE A - GENERAL (9060X) [Suspect]
     Active Substance: BOTULINUM TOXIN TYPE A
     Dosage: 270 UNITS, SINGLE
     Route: 030
     Dates: start: 20150109, end: 20150109
  17. FESOTERODINE [Concomitant]
     Active Substance: FESOTERODINE
  18. FINASTERIDE. [Concomitant]
     Active Substance: FINASTERIDE
  19. TRIMETHOPRIM SULFATE AND POLYMYXIN B SULFATE, 0.1% [Concomitant]
  20. CITALOPRAM [Concomitant]
     Active Substance: CITALOPRAM HYDROBROMIDE
  21. SULFAMETHAZINE [Concomitant]
     Active Substance: SULFAMETHAZINE
  22. BOTULINUM TOXIN TYPE A - GENERAL (9060X) [Suspect]
     Active Substance: BOTULINUM TOXIN TYPE A
     Dosage: 15 UNITS, SINGLE
     Route: 030
     Dates: start: 20150410, end: 20150410
  23. BOTULINUM TOXIN TYPE A - GENERAL (9060X) [Suspect]
     Active Substance: BOTULINUM TOXIN TYPE A
     Dosage: 20 UNITS, SINGLE
     Route: 030
     Dates: start: 20150410, end: 20150410
  24. BOTULINUM TOXIN TYPE A - GENERAL (9060X) [Suspect]
     Active Substance: BOTULINUM TOXIN TYPE A
     Dosage: 15 UNITS SINGLE
     Route: 030
     Dates: start: 20150410, end: 20150410
  25. BOTULINUM TOXIN TYPE A - GENERAL (9060X) [Suspect]
     Active Substance: BOTULINUM TOXIN TYPE A
     Dosage: UNK UNK, SINGLE
     Route: 030
     Dates: start: 20150410, end: 20150410

REACTIONS (2)
  - Slow speech [Recovered/Resolved]
  - Dysphagia [Recovered/Resolved]

NARRATIVE: CASE EVENT DATE: 20150410
